FAERS Safety Report 19782216 (Version 5)
Quarter: 2023Q1

REPORT INFORMATION
  Report Type: Report from Study
  Country: GB (occurrence: GB)
  Receive Date: 20210902
  Receipt Date: 20230223
  Transmission Date: 20230417
  Serious: Yes (Death, Hospitalization, Other)
  Sender: FDA-Public Use
  Company Number: GB-ROCHE-2677215

PATIENT
  Age: 71 Year
  Sex: Female
  Weight: 51.2 kg

DRUGS (37)
  1. DEXAMETHASONE [Suspect]
     Active Substance: DEXAMETHASONE
     Indication: Dysphagia
     Route: 065
     Dates: start: 20200826
  2. VENLAFAXINE [Suspect]
     Active Substance: VENLAFAXINE HYDROCHLORIDE
     Indication: Depression
     Route: 065
  3. VENLAFAXINE [Suspect]
     Active Substance: VENLAFAXINE HYDROCHLORIDE
     Route: 065
     Dates: start: 20200820
  4. ALBUTEROL [Suspect]
     Active Substance: ALBUTEROL
     Indication: Prophylaxis
     Route: 065
  5. CIPROFLOXACIN [Suspect]
     Active Substance: CIPROFLOXACIN
     Indication: Prophylaxis
     Route: 065
     Dates: start: 20200827
  6. CYCLIZINE [Suspect]
     Active Substance: CYCLIZINE
     Indication: Vomiting
     Route: 065
  7. CYCLIZINE [Suspect]
     Active Substance: CYCLIZINE
     Indication: Neutropenic sepsis
  8. TIOTROPIUM [Suspect]
     Active Substance: TIOTROPIUM
     Indication: Chronic obstructive pulmonary disease
     Route: 065
  9. LINEZOLID [Suspect]
     Active Substance: LINEZOLID
     Indication: Neutropenic sepsis
     Route: 065
     Dates: start: 20200830
  10. CLOPIDOGREL [Suspect]
     Active Substance: CLOPIDOGREL BISULFATE
     Indication: Hypertension
     Route: 065
  11. LANSOPRAZOLE [Suspect]
     Active Substance: LANSOPRAZOLE
     Indication: Prophylaxis
     Route: 065
     Dates: start: 20170101
  12. AMOXICILLIN [Suspect]
     Active Substance: AMOXICILLIN
     Indication: Product used for unknown indication
     Route: 065
     Dates: start: 20200810, end: 20200816
  13. AMLODIPINE [Suspect]
     Active Substance: AMLODIPINE BESYLATE
     Indication: Hypertension
     Route: 065
  14. VORICONAZOLE [Suspect]
     Active Substance: VORICONAZOLE
     Indication: Neutropenic sepsis
     Route: 065
     Dates: start: 20200830
  15. MORPHINE SULFATE [Suspect]
     Active Substance: MORPHINE SULFATE
     Indication: Prophylaxis
     Route: 065
     Dates: start: 20200825
  16. MORPHINE SULFATE [Suspect]
     Active Substance: MORPHINE SULFATE
     Indication: Pain
     Route: 065
     Dates: start: 20200731
  17. MORPHINE SULFATE [Suspect]
     Active Substance: MORPHINE SULFATE
     Route: 065
     Dates: start: 20200825
  18. FORMOTEROL [Suspect]
     Active Substance: FORMOTEROL
     Indication: Hypertension
     Route: 065
     Dates: start: 20200301
  19. CARBOPLATIN [Suspect]
     Active Substance: CARBOPLATIN
     Indication: Non-small cell lung cancer
     Route: 065
     Dates: start: 20200729
  20. CARBOPLATIN [Suspect]
     Active Substance: CARBOPLATIN
     Indication: Small cell lung cancer extensive stage
  21. BENZYDAMINE [Suspect]
     Active Substance: BENZYDAMINE
     Indication: Prophylaxis
     Route: 065
     Dates: start: 20200819
  22. ORAMORPH SR SUSTAINED RELEASE [Suspect]
     Active Substance: MORPHINE SULFATE
     Indication: Pain
     Route: 065
     Dates: start: 20200727
  23. FLUCONAZOLE [Suspect]
     Active Substance: FLUCONAZOLE
     Indication: Candida infection
     Route: 065
  24. ATEZOLIZUMAB [Suspect]
     Active Substance: ATEZOLIZUMAB
     Indication: Non-small cell lung cancer
     Dosage: MOST RECENT DOSE OF ATEZOLIZUMAB PRIOR TO ADVERSE EVENT (NAUSEA) ONSET ON 19/AUG/2020.
     Route: 065
     Dates: start: 20200729
  25. ATEZOLIZUMAB [Suspect]
     Active Substance: ATEZOLIZUMAB
     Indication: Small cell lung cancer
  26. ATEZOLIZUMAB [Suspect]
     Active Substance: ATEZOLIZUMAB
     Indication: Transitional cell carcinoma
  27. ATEZOLIZUMAB [Suspect]
     Active Substance: ATEZOLIZUMAB
     Indication: Small cell lung cancer extensive stage
  28. LACTULOSE [Suspect]
     Active Substance: LACTULOSE
     Indication: Prophylaxis
     Route: 065
  29. LACTULOSE [Suspect]
     Active Substance: LACTULOSE
     Route: 065
  30. ACETAMINOPHEN\CODEINE PHOSPHATE [Suspect]
     Active Substance: ACETAMINOPHEN\CODEINE PHOSPHATE
     Indication: Pain
     Route: 065
  31. ZOPICLONE [Suspect]
     Active Substance: ZOPICLONE
     Indication: Prophylaxis
     Route: 065
     Dates: start: 20200731
  32. ETOPOSIDE [Suspect]
     Active Substance: ETOPOSIDE
     Indication: Non-small cell lung cancer
     Route: 065
     Dates: start: 20200729
  33. ETOPOSIDE [Suspect]
     Active Substance: ETOPOSIDE
     Indication: Small cell lung cancer extensive stage
     Route: 048
     Dates: start: 20200730
  34. ONDANSETRON [Concomitant]
     Active Substance: ONDANSETRON
     Indication: Product used for unknown indication
     Dates: start: 20200729, end: 20200729
  35. POTASSIUM BICARBONATE\POTASSIUM CHLORIDE [Concomitant]
     Active Substance: POTASSIUM BICARBONATE\POTASSIUM CHLORIDE
     Indication: Prophylaxis
     Dates: start: 20200828, end: 20200901
  36. POTASSIUM BICARBONATE\POTASSIUM CHLORIDE [Concomitant]
     Active Substance: POTASSIUM BICARBONATE\POTASSIUM CHLORIDE
     Dates: start: 20200819
  37. PHOSPHORIC ACID [Concomitant]
     Active Substance: PHOSPHORIC ACID
     Indication: Product used for unknown indication

REACTIONS (19)
  - Death [Fatal]
  - Neutropenic sepsis [Not Recovered/Not Resolved]
  - Dysphagia [Not Recovered/Not Resolved]
  - Hypokalaemia [Recovered/Resolved]
  - Nausea [Recovered/Resolved]
  - Hypomagnesaemia [Recovered/Resolved]
  - Mucosal inflammation [Not Recovered/Not Resolved]
  - Vomiting [Not Recovered/Not Resolved]
  - Vomiting [Not Recovered/Not Resolved]
  - Constipation [Not Recovered/Not Resolved]
  - Productive cough [Not Recovered/Not Resolved]
  - Diarrhoea [Recovered/Resolved]
  - Anaemia [Recovered/Resolved]
  - Dehydration [Not Recovered/Not Resolved]
  - Dyspnoea [Not Recovered/Not Resolved]
  - Mouth ulceration [Recovered/Resolved]
  - Skin candida [Not Recovered/Not Resolved]
  - Depression [Not Recovered/Not Resolved]
  - Headache [Not Recovered/Not Resolved]

NARRATIVE: CASE EVENT DATE: 20200730
